FAERS Safety Report 5263075-6 (Version None)
Quarter: 2007Q1

REPORT INFORMATION
  Report Type: 
  Country: None (occurrence: None)
  Receive Date: 20070312
  Receipt Date: 20070228
  Transmission Date: 20070707
  Serious: Yes (Other)
  Sender: FDA-Public Use
  Company Number: CA-PFIZER INC-2007016549

PATIENT
  Age: 46 Year
  Sex: Female

DRUGS (2)
  1. LYRICA [Suspect]
     Indication: PAIN
     Route: 048
  2. AMITRIPTYLINE HCL [Concomitant]

REACTIONS (2)
  - NERVE INJURY [None]
  - VISUAL DISTURBANCE [None]
